FAERS Safety Report 8604876-3 (Version None)
Quarter: 2012Q3

REPORT INFORMATION
  Report Type: 
  Country: None (occurrence: None)
  Receive Date: 20120820
  Receipt Date: 20120810
  Transmission Date: 20120928
  Serious: Yes (Other)
  Sender: FDA-Public Use
  Company Number: US-ASTELLAS-2012US007059

PATIENT
  Sex: Female
  Weight: 49 kg

DRUGS (2)
  1. ERLOTINIB HYDROCHLORIDE [Suspect]
     Dosage: 150 MG, UID/QD
     Route: 048
     Dates: start: 20120516
  2. ERLOTINIB HYDROCHLORIDE [Suspect]
     Indication: NON-SMALL CELL LUNG CANCER
     Dosage: 150 MG, UID/QD
     Route: 048
     Dates: start: 20120228, end: 20120413

REACTIONS (8)
  - RASH [None]
  - ERYTHEMA OF EYELID [None]
  - EAR PRURITUS [None]
  - SCAR EXCISION [None]
  - AURICULAR SWELLING [None]
  - EYELID MARGIN CRUSTING [None]
  - RASH ERYTHEMATOUS [None]
  - EYELIDS PRURITUS [None]
